FAERS Safety Report 10791971 (Version 1)
Quarter: 2015Q1

REPORT INFORMATION
  Report Type: Spontaneous
  Country: US (occurrence: US)
  Receive Date: 20150213
  Receipt Date: 20150213
  Transmission Date: 20150721
  Serious: No
  Sender: FDA-Public Use
  Company Number: US-GLAXOSMITHKLINE-A1077043A

PATIENT

DRUGS (2)
  1. NICODERM CQ [Suspect]
     Active Substance: NICOTINE
  2. NICODERM CQ [Suspect]
     Active Substance: NICOTINE
     Indication: EX-TOBACCO USER
     Dates: start: 20140508, end: 20140508

REACTIONS (4)
  - Nausea [Recovered/Resolved]
  - Product quality issue [Unknown]
  - Drug administration error [Unknown]
  - Application site erythema [Recovered/Resolved]

NARRATIVE: CASE EVENT DATE: 20140508
